FAERS Safety Report 6831283-6 (Version None)
Quarter: 2010Q3

REPORT INFORMATION
  Report Type: 
  Country: None (occurrence: None)
  Receive Date: 20100712
  Receipt Date: 20100702
  Transmission Date: 20110219
  Serious: Yes (Hospitalization)
  Sender: FDA-Public Use
  Company Number: FR-PFIZER INC-2010082827

PATIENT
  Age: 76 Year
  Sex: Male

DRUGS (12)
  1. TAHOR [Suspect]
     Dosage: 1 DF, 1X/DAY, THE EVENING
     Route: 048
     Dates: start: 20100526
  2. CLOPIDOGREL [Suspect]
     Dosage: 1 DF, 1X/DAY, AT NOON
     Route: 048
     Dates: start: 20100528, end: 20100531
  3. ASPIRIN [Suspect]
     Dosage: 100 MG, 2X/DAY, ON MORNING AND EVENING
     Route: 048
     Dates: start: 20010526
  4. LOVENOX [Concomitant]
     Dosage: 4000 IU, ANTI-XA/0.4ML SOLN IN PREFILLED SYRINGE
  5. KARDEGIC [Concomitant]
     Dosage: ONE PER DAY
  6. PRAVASTATINE ALMUS [Concomitant]
     Dosage: 20 MG, 1X/DAY
     Dates: start: 20091001
  7. APROVEL 300 [Concomitant]
     Dosage: 300 UNK, 1X/DAY
     Dates: start: 20091001, end: 20100401
  8. APROVEL 300 [Concomitant]
     Dosage: 75 MG, UNK
     Dates: start: 20100401
  9. ZANIDIP [Concomitant]
     Dosage: UNK
     Dates: end: 20100401
  10. ART 50 [Concomitant]
     Dosage: UNK
     Dates: end: 20100503
  11. STRUCTUM 500 [Concomitant]
     Dosage: UNK, TWICE A DAY
  12. DAFALGAN 500 [Concomitant]
     Dosage: UNK

REACTIONS (1)
  - DRUG INEFFECTIVE [None]
